FAERS Safety Report 8811793 (Version 1)
Quarter: 2012Q4

REPORT INFORMATION
  Report Type: 
  Country: US (occurrence: US)
  Receive Date: 20120927
  Receipt Date: 20120927
  Transmission Date: 20130627
  Serious: Yes (Death, Hospitalization)
  Sender: FDA-Public Use
  Company Number: US-GLAXOSMITHKLINE-A0778526A

PATIENT
  Age: 68 Year
  Sex: Male

DRUGS (1)
  1. AVANDIA [Suspect]
     Indication: DIABETES MELLITUS
     Route: 065

REACTIONS (8)
  - Cardiac arrest [Fatal]
  - Cerebrovascular accident [Unknown]
  - Cardiac arrest [Unknown]
  - Myocardial infarction [Unknown]
  - Haemorrhage intracranial [Unknown]
  - Cardiac failure congestive [Unknown]
  - Bradycardia [Unknown]
  - Atrial fibrillation [Unknown]
